FAERS Safety Report 8263536-1 (Version None)
Quarter: 2012Q2

REPORT INFORMATION
  Report Type: 
  Country: None (occurrence: None)
  Receive Date: 20120405
  Receipt Date: 20120328
  Transmission Date: 20120825
  Serious: Yes (Hospitalization)
  Sender: FDA-Public Use
  Company Number: GB-PERRIGO-12GB002603

PATIENT
  Sex: Female
  Weight: 85.714 kg

DRUGS (2)
  1. EXTRA POWER PAIN RELIEVER 12063/0009 [Suspect]
     Dosage: 1 DF, SINGLE
     Route: 048
     Dates: start: 20120320, end: 20120320
  2. EXTRA POWER PAIN RELIEVER 12063/0009 [Suspect]
     Indication: HEADACHE
     Dosage: 1 DF, SINGLE
     Route: 048
     Dates: start: 20120207, end: 20120207

REACTIONS (3)
  - LOSS OF CONSCIOUSNESS [None]
  - URTICARIA [None]
  - HEADACHE [None]
